FAERS Safety Report 4878579-5 (Version None)
Quarter: 2006Q1

REPORT INFORMATION
  Report Type: 
  Country: None (occurrence: None)
  Receive Date: 20060112
  Receipt Date: 20060102
  Transmission Date: 20060701
  Serious: Yes (Hospitalization)
  Sender: FDA-Public Use
  Company Number: PHBS2006DE00463

PATIENT
  Age: 61 Year
  Sex: Male

DRUGS (6)
  1. CYCLOSPORINE [Suspect]
     Indication: LIVER TRANSPLANT
  2. AZATHIOPRINE [Suspect]
     Indication: LIVER TRANSPLANT
  3. METHYLPREDNISOLONE [Suspect]
     Indication: LIVER TRANSPLANT
  4. CLOMIPRAMINE HCL [Concomitant]
  5. CLONIDINE [Concomitant]
  6. PRAVASTATIN [Concomitant]

REACTIONS (19)
  - BLOOD ALKALINE PHOSPHATASE INCREASED [None]
  - BLOOD BILIRUBIN INCREASED [None]
  - CHOLANGITIS CHRONIC [None]
  - CHOLESTASIS [None]
  - DISEASE RECURRENCE [None]
  - EPSTEIN-BARR VIRUS ANTIBODY POSITIVE [None]
  - GAMMA-GLUTAMYLTRANSFERASE INCREASED [None]
  - HEPATIC FIBROSIS [None]
  - HEPATIC NECROSIS [None]
  - HEPATIC STEATOSIS [None]
  - HEPATITIS A [None]
  - HEPATOCELLULAR DAMAGE [None]
  - HEPATOTOXICITY [None]
  - INTERNATIONAL NORMALISED RATIO DECREASED [None]
  - INTUBATION [None]
  - JAUNDICE [None]
  - LIVER TRANSPLANT REJECTION [None]
  - PULMONARY OEDEMA [None]
  - TRANSAMINASES INCREASED [None]
